FAERS Safety Report 7247489-0 (Version None)
Quarter: 2011Q1

REPORT INFORMATION
  Report Type: 
  Country: None (occurrence: None)
  Receive Date: 20110127
  Receipt Date: 20110120
  Transmission Date: 20110831
  Serious: Yes (Death, Life-Threatening, Hospitalization, Disabling)
  Sender: FDA-Public Use
  Company Number: FR-BRISTOL-MYERS SQUIBB COMPANY-15442619

PATIENT
  Age: 71 Year
  Sex: Female

DRUGS (6)
  1. CORTANCYL [Suspect]
     Indication: RHEUMATOID ARTHRITIS
     Route: 048
  2. ORENCIA [Suspect]
     Indication: RHEUMATOID ARTHRITIS
     Route: 042
  3. TRIATEC [Concomitant]
     Indication: HYPERTENSION
  4. LYSANXIA [Concomitant]
     Indication: ANXIETY
  5. NEXIUM [Concomitant]
     Indication: GASTROOESOPHAGEAL REFLUX DISEASE
  6. ARAVA [Suspect]
     Indication: RHEUMATOID ARTHRITIS
     Route: 048

REACTIONS (3)
  - SUPRAVENTRICULAR TACHYCARDIA [None]
  - SEPTIC SHOCK [None]
  - PNEUMONIA [None]
